FAERS Safety Report 6419852-9 (Version None)
Quarter: 2009Q4

REPORT INFORMATION
  Report Type: 
  Country: None (occurrence: None)
  Receive Date: 20091029
  Receipt Date: 20091019
  Transmission Date: 20100525
  Serious: Yes (Other)
  Sender: FDA-Public Use
  Company Number: JP-ELI_LILLY_AND_COMPANY-JP200910006060

PATIENT
  Sex: Female

DRUGS (1)
  1. EVISTA [Suspect]
     Route: 048

REACTIONS (1)
  - CEREBRAL INFARCTION [None]
